FAERS Safety Report 12877223 (Version 9)
Quarter: 2018Q4

REPORT INFORMATION
  Report Type: Report from Study
  Country: JP (occurrence: JP)
  Receive Date: 20161024
  Receipt Date: 20181104
  Transmission Date: 20190204
  Serious: Yes (Death, Hospitalization, Other)
  Sender: FDA-Public Use
  Company Number: PHJP2016JP029577

PATIENT
  Age: 50 Year
  Sex: Male

DRUGS (10)
  1. TAFINLAR [Suspect]
     Active Substance: DABRAFENIB MESYLATE
     Indication: MALIGNANT MELANOMA STAGE IV
     Dosage: 300 MG, QD
     Route: 048
     Dates: start: 20160607, end: 20160619
  2. TAFINLAR [Suspect]
     Active Substance: DABRAFENIB MESYLATE
     Dosage: 150 MG, QD
     Route: 048
     Dates: start: 20160712, end: 20160822
  3. TAFINLAR [Suspect]
     Active Substance: DABRAFENIB MESYLATE
     Dosage: 200 MG, QD
     Route: 048
     Dates: start: 20160823, end: 20161003
  4. MEKINIST [Suspect]
     Active Substance: TRAMETINIB DIMETHYL SULFOXIDE
     Dosage: 1.5 MG, QD
     Route: 048
     Dates: start: 20160712, end: 20161003
  5. MEKINIST [Suspect]
     Active Substance: TRAMETINIB DIMETHYL SULFOXIDE
     Dosage: 2 MG, QD
     Route: 048
     Dates: start: 20161004, end: 20161121
  6. PREDNISOLONE. [Concomitant]
     Active Substance: PREDNISOLONE
     Indication: METASTATIC MALIGNANT MELANOMA
     Dosage: 20 MG, QD
     Route: 065
     Dates: start: 20160607
  7. PREDNISOLONE. [Concomitant]
     Active Substance: PREDNISOLONE
     Dosage: 20 MG, QD
     Route: 065
  8. TAFINLAR [Suspect]
     Active Substance: DABRAFENIB MESYLATE
     Dosage: 200 MG, QD
     Route: 048
     Dates: start: 20160707, end: 20160707
  9. TAFINLAR [Suspect]
     Active Substance: DABRAFENIB MESYLATE
     Dosage: 300 MG, QD
     Route: 048
     Dates: start: 20161004, end: 20161121
  10. MEKINIST [Suspect]
     Active Substance: TRAMETINIB DIMETHYL SULFOXIDE
     Indication: MALIGNANT MELANOMA STAGE IV
     Dosage: 2 MG, QD
     Route: 048
     Dates: start: 20160607, end: 20160619

REACTIONS (28)
  - Malignant melanoma stage IV [Fatal]
  - Back pain [Fatal]
  - Malignant neoplasm progression [Fatal]
  - Blood potassium increased [Recovered/Resolved]
  - Fibrin D dimer increased [Unknown]
  - Procalcitonin increased [Unknown]
  - Hepatic function abnormal [Recovering/Resolving]
  - Renal impairment [Recovering/Resolving]
  - Disseminated intravascular coagulation [Recovered/Resolved]
  - Platelet count decreased [Recovered/Resolved]
  - Hyperfibrinolysis [Unknown]
  - Pyrexia [Recovered/Resolved]
  - Blood creatine phosphokinase increased [Recovered/Resolved]
  - C-reactive protein increased [Unknown]
  - Dehydration [Recovering/Resolving]
  - Skin induration [Fatal]
  - Activated partial thromboplastin time prolonged [Recovered/Resolved]
  - Blood lactate dehydrogenase increased [Unknown]
  - Malaise [Recovered/Resolved]
  - Coagulopathy [Recovered/Resolved]
  - Lymphocyte count abnormal [Recovered/Resolved]
  - White blood cell count decreased [Unknown]
  - Fibrin degradation products [Unknown]
  - Pyrexia [Recovering/Resolving]
  - Pyrexia [Fatal]
  - Concomitant disease aggravated [Fatal]
  - Pancytopenia [Recovered/Resolved]
  - Serum ferritin increased [Unknown]

NARRATIVE: CASE EVENT DATE: 20160619
